FAERS Safety Report 16598266 (Version 2)
Quarter: 2019Q3

REPORT INFORMATION
  Report Type: Spontaneous
  Country: DE (occurrence: DE)
  Receive Date: 20190719
  Receipt Date: 20190809
  Transmission Date: 20191004
  Serious: No
  Sender: FDA-Public Use
  Company Number: DE-EMD SERONO-9104618

PATIENT
  Age: 28 Year
  Sex: Female
  Weight: 57 kg

DRUGS (3)
  1. COLECALCIFEROL [Concomitant]
     Active Substance: CHOLECALCIFEROL
     Indication: VITAMIN D DEFICIENCY
     Dosage: 20000 (UNSPECIFIED UNITS)
     Route: 048
     Dates: start: 20171222
  2. MAVENCLAD [Suspect]
     Active Substance: CLADRIBINE
     Indication: MULTIPLE SCLEROSIS
     Dosage: FIRST YEAR THERAPY
     Route: 048
     Dates: start: 20180304
  3. MAVENCLAD [Suspect]
     Active Substance: CLADRIBINE
     Dosage: SECOND YEAR THERAPY
     Route: 048
     Dates: end: 20190412

REACTIONS (3)
  - Wound infection [Unknown]
  - Skin injury [Unknown]
  - Nail bed inflammation [Unknown]
